FAERS Safety Report 7179847-7 (Version None)
Quarter: 2010Q4

REPORT INFORMATION
  Report Type: 
  Country: None (occurrence: None)
  Receive Date: 20101209
  Receipt Date: 20101130
  Transmission Date: 20110411
  Serious: Yes (Other)
  Sender: FDA-Public Use
  Company Number: 2010JP007074

PATIENT
  Age: 5 Year
  Sex: Female
  Weight: 16.2 kg

DRUGS (14)
  1. TACROLIMUS [Suspect]
     Indication: HEART TRANSPLANT
     Dosage: SEE IMAGE
     Route: 048
     Dates: start: 20030101, end: 20030101
  2. TACROLIMUS [Suspect]
     Indication: HEART TRANSPLANT
     Dosage: SEE IMAGE
     Route: 048
     Dates: start: 20030801, end: 20030101
  3. TACROLIMUS [Suspect]
     Indication: HEART TRANSPLANT
     Dosage: SEE IMAGE
     Route: 048
     Dates: end: 20030101
  4. TACROLIMUS [Suspect]
     Indication: HEART TRANSPLANT
     Dosage: SEE IMAGE
     Route: 048
     Dates: end: 20050101
  5. TACROLIMUS [Suspect]
     Indication: HEART TRANSPLANT
     Dosage: SEE IMAGE
     Route: 048
     Dates: start: 20020101
  6. TACROLIMUS [Suspect]
     Indication: HEART TRANSPLANT
     Dosage: SEE IMAGE
     Route: 048
     Dates: start: 20030101
  7. TACROLIMUS [Suspect]
     Indication: HEART TRANSPLANT
     Dosage: SEE IMAGE
     Route: 048
     Dates: start: 20050101
  8. TACROLIMUS [Suspect]
     Indication: HEART TRANSPLANT
     Dosage: SEE IMAGE
     Route: 048
     Dates: start: 20050101
  9. TACROLIMUS [Suspect]
     Indication: HEART TRANSPLANT
     Dosage: 3.2 MG, BID, ORAL; 3.1 MG, BID, ORAL
     Route: 048
     Dates: end: 20050101
  10. TACROLIMUS [Suspect]
     Indication: HEART TRANSPLANT
     Dosage: 3.2 MG, BID, ORAL; 3.1 MG, BID, ORAL
     Route: 048
     Dates: start: 20050101
  11. CELLCEPT [Suspect]
     Indication: HEART TRANSPLANT
     Dosage: 150 MG, ORAL; 300 MG, ORAL
     Route: 048
  12. PREDNISOLONE [Concomitant]
  13. RENIVACE (ENALAPRIL MALEATE) FORMULATION UNKNOWN [Concomitant]
  14. ASPIRIN (ACETYLSALICYLIC ACID) FORMULATION UNKNOWN [Concomitant]

REACTIONS (3)
  - BONE MARROW FAILURE [None]
  - DIARRHOEA [None]
  - RENAL IMPAIRMENT [None]
